FAERS Safety Report 6677670-0 (Version None)
Quarter: 2010Q2

REPORT INFORMATION
  Report Type: 
  Country: None (occurrence: None)
  Receive Date: 20100412
  Receipt Date: 20100315
  Transmission Date: 20101027
  Serious: No
  Sender: FDA-Public Use
  Company Number: US-ALEXION-A201000292

PATIENT
  Sex: Male

DRUGS (9)
  1. SOLIRIS [Suspect]
     Indication: PAROXYSMAL NOCTURNAL HAEMOGLOBINURIA
     Dosage: UNK
     Route: 042
     Dates: start: 20081125
  2. SOLIRIS [Suspect]
     Dosage: 900 MG, Q2W
     Route: 042
     Dates: end: 20090801
  3. SOLIRIS [Suspect]
     Dosage: 1200 MG, Q2W
     Route: 042
     Dates: start: 20090825
  4. SOLIRIS [Suspect]
     Dosage: 900 MG, Q2W
     Route: 042
  5. SOLIRIS [Suspect]
     Dosage: 1200 MG, UNK
     Route: 042
  6. EXJADE [Concomitant]
     Dosage: 500 MG, TID
     Route: 048
     Dates: end: 20100312
  7. EXJADE [Concomitant]
     Dosage: 500 MG, 6XDAY
     Route: 048
     Dates: start: 20100312
  8. FOLIC ACID [Suspect]
     Dosage: 1 MG, QD
     Route: 048
  9. VITAMIN B12                        /00056201/ [Concomitant]
     Dosage: 1000 UG, QD
     Route: 048

REACTIONS (1)
  - SERUM FERRITIN INCREASED [None]
